FAERS Safety Report 20347688 (Version 1)
Quarter: 2022Q1

REPORT INFORMATION
  Report Type: Spontaneous
  Country: TW (occurrence: TW)
  Receive Date: 20220118
  Receipt Date: 20220118
  Transmission Date: 20220423
  Serious: Yes (Other)
  Sender: FDA-Public Use
  Company Number: TW-BAYER-2022A006551

PATIENT
  Age: 8 Decade
  Sex: Male

DRUGS (2)
  1. AVELOX [Suspect]
     Active Substance: MOXIFLOXACIN HYDROCHLORIDE
     Indication: Skin bacterial infection
     Dosage: 400 MG, QD
     Route: 048
     Dates: start: 20201208
  2. QUININE [Concomitant]
     Active Substance: QUININE

REACTIONS (3)
  - Dementia [Not Recovered/Not Resolved]
  - Drug ineffective [None]
  - Incorrect product administration duration [None]

NARRATIVE: CASE EVENT DATE: 20211201
